FAERS Safety Report 12328350 (Version 1)
Quarter: 2016Q2

REPORT INFORMATION
  Report Type: Spontaneous
  Country: BR (occurrence: BR)
  Receive Date: 20160503
  Receipt Date: 20160503
  Transmission Date: 20160815
  Serious: Yes (Hospitalization, Other)
  Sender: FDA-Public Use
  Company Number: BR-PFIZER INC-2016029886

PATIENT
  Age: 58 Year
  Sex: Female

DRUGS (2)
  1. PREMARIN [Suspect]
     Active Substance: ESTROGENS, CONJUGATED
     Dosage: 0.625 MG, 1X/DAY
     Dates: start: 2008
  2. PREMARIN [Suspect]
     Active Substance: ESTROGENS, CONJUGATED
     Indication: OESTROGEN REPLACEMENT THERAPY
     Dosage: 2.5 MG, DAILY
     Dates: start: 1989, end: 2004

REACTIONS (11)
  - Uterine cyst [Unknown]
  - Spinal disorder [Unknown]
  - Swelling [Unknown]
  - Drug ineffective [Unknown]
  - Product use issue [Unknown]
  - Breast cancer [Recovered/Resolved]
  - Insomnia [Unknown]
  - Post procedural complication [Unknown]
  - Hypertension [Not Recovered/Not Resolved]
  - Urinary incontinence [Not Recovered/Not Resolved]
  - Metastases to breast [Unknown]

NARRATIVE: CASE EVENT DATE: 2004
